FAERS Safety Report 8052708-7 (Version None)
Quarter: 2012Q1

REPORT INFORMATION
  Report Type: 
  Country: None (occurrence: None)
  Receive Date: 20120118
  Receipt Date: 20120118
  Transmission Date: 20120608
  Serious: Yes (Death)
  Sender: FDA-Public Use
  Company Number: None

PATIENT
  Age: 55 Year
  Sex: Male
  Weight: 90.718 kg

DRUGS (1)
  1. BLEOMYCIN SULFATE [Suspect]

REACTIONS (4)
  - LUNG DISORDER [None]
  - CARDIAC DISORDER [None]
  - PULMONARY TOXICITY [None]
  - PNEUMONIA [None]
